FAERS Safety Report 24252616 (Version 1)
Quarter: 2024Q3

REPORT INFORMATION
  Report Type: Spontaneous
  Country: US (occurrence: US)
  Receive Date: 20240827
  Receipt Date: 20240827
  Transmission Date: 20241016
  Serious: No
  Sender: AMGEN
  Company Number: US-AMGEN-USASP2024167545

PATIENT
  Age: 88 Year
  Sex: Male

DRUGS (1)
  1. PROLIA [Suspect]
     Active Substance: DENOSUMAB
     Indication: Product used for unknown indication
     Dosage: UNK UNK, UNK
     Route: 065
     Dates: start: 201912

REACTIONS (5)
  - Arthralgia [Unknown]
  - Pain in extremity [Unknown]
  - Musculoskeletal disorder [Unknown]
  - Myalgia [Unknown]
  - Back pain [Unknown]
